FAERS Safety Report 5895568-2 (Version None)
Quarter: 2008Q3

REPORT INFORMATION
  Report Type: 
  Country: None (occurrence: None)
  Receive Date: 20080924
  Receipt Date: 20080115
  Transmission Date: 20090109
  Serious: Yes (Other)
  Sender: FDA-Public Use
  Company Number: US-ASTRAZENECA-2006UW07981

PATIENT
  Age: 664 Month
  Sex: Female
  Weight: 111.1 kg

DRUGS (24)
  1. SEROQUEL [Suspect]
     Indication: INSOMNIA
     Route: 048
     Dates: start: 20001201, end: 20060531
  2. SEROQUEL [Suspect]
     Indication: DEPRESSION
     Route: 048
     Dates: start: 20001201, end: 20060531
  3. CELEXA [Concomitant]
     Dosage: 20 TO 40 MG
     Dates: start: 20010201
  4. ATENOLOL [Concomitant]
  5. LEVOXYL [Concomitant]
  6. AMITRIPTYLINE HCL [Concomitant]
  7. ROXICET [Concomitant]
  8. ADVAIR DISKUS 100/50 [Concomitant]
  9. COMBIVENT [Concomitant]
  10. CITALOPRAM HYDROBROMIDE [Concomitant]
  11. METFORMIN HCL [Concomitant]
  12. BUTALBITAL [Concomitant]
  13. ZOCOR [Concomitant]
  14. GLIPIZIDE [Concomitant]
  15. ANDEHIST [Concomitant]
  16. PROPOXYPHENE NAPSYLATE AND ACETAMINOPHEN [Concomitant]
  17. PROMETHAZINE [Concomitant]
  18. DICYCLOMINE [Concomitant]
  19. SULFAMETHOXAZOLE AND TRIMETHOPRIM [Concomitant]
  20. OXYCODONE AND ACETAMINOPHEN [Concomitant]
  21. SIMVASTATIN [Concomitant]
  22. AMBIEN [Concomitant]
  23. TRIAMCINOLONE [Concomitant]
  24. KETOROLAC TROMETHAMINE [Concomitant]

REACTIONS (2)
  - DIABETES MELLITUS [None]
  - TARDIVE DYSKINESIA [None]
